FAERS Safety Report 19048344 (Version 1)
Quarter: 2021Q1

REPORT INFORMATION
  Report Type: Spontaneous
  Country: FR (occurrence: FR)
  Receive Date: 20210324
  Receipt Date: 20210324
  Transmission Date: 20210420
  Serious: Yes (Hospitalization)
  Sender: FDA-Public Use
  Company Number: FR-BAUSCH-BL-2021-009051

PATIENT
  Age: 12 Year
  Sex: Male
  Weight: 36 kg

DRUGS (3)
  1. CEFAZOLINE [Suspect]
     Active Substance: CEFAZOLIN SODIUM
     Indication: ARTHRITIS BACTERIAL
     Route: 042
     Dates: start: 20210202, end: 20210205
  2. GENTAMICINE [Suspect]
     Active Substance: GENTAMICIN
     Indication: ARTHRITIS BACTERIAL
     Route: 041
     Dates: start: 20210202, end: 20210203
  3. BACTRIM [Suspect]
     Active Substance: SULFAMETHOXAZOLE\TRIMETHOPRIM
     Indication: ARTHRITIS BACTERIAL
     Dosage: COMPRESSED
     Route: 048
     Dates: start: 20210205, end: 20210225

REACTIONS (1)
  - Drug reaction with eosinophilia and systemic symptoms [Recovering/Resolving]

NARRATIVE: CASE EVENT DATE: 20210222
